FAERS Safety Report 10179179 (Version 1)
Quarter: 2014Q2

REPORT INFORMATION
  Report Type: Report from Study
  Country: JP (occurrence: JP)
  Receive Date: 20140519
  Receipt Date: 20140519
  Transmission Date: 20141212
  Serious: Yes (Other)
  Sender: FDA-Public Use
  Company Number: JP-SA-2014SA063211

PATIENT
  Age: 38 Year
  Sex: Male
  Weight: 61 kg

DRUGS (15)
  1. THYMOGLOBULINE [Suspect]
     Indication: BONE MARROW CONDITIONING REGIMEN
     Route: 042
     Dates: start: 20110906, end: 20110907
  2. ACIROVEC [Concomitant]
     Indication: ANTIVIRAL PROPHYLAXIS
     Dates: start: 20110914
  3. NIFEDIPINE [Concomitant]
     Indication: HYPERTENSION
     Dates: start: 20110729
  4. ETOPOSIDE [Concomitant]
     Dates: start: 20110909, end: 20110910
  5. ETOPOSIDE [Concomitant]
     Dates: start: 20110825, end: 20110905
  6. CYLOCIDE [Concomitant]
     Dates: start: 20110825, end: 20110905
  7. ALKERAN [Concomitant]
     Dates: start: 20110904, end: 20110911
  8. FLUDARA [Concomitant]
     Dates: start: 20110906, end: 20110911
  9. UROKINASE [Concomitant]
     Indication: PROPHYLAXIS
     Dates: start: 20110906, end: 20110907
  10. KYTRIL [Concomitant]
     Indication: PROPHYLAXIS OF NAUSEA AND VOMITING
     Dates: start: 20110825, end: 20110912
  11. DENOSINE [Concomitant]
     Indication: ANTIVIRAL PROPHYLAXIS
     Dates: start: 20110905, end: 20110912
  12. MAXIPIME [Concomitant]
     Indication: ANTIBIOTIC PROPHYLAXIS
     Dates: start: 20110907, end: 20110909
  13. FUNGUARD [Concomitant]
     Indication: ANTIFUNGAL PROPHYLAXIS
     Dates: start: 20110909, end: 20110927
  14. PROGRAF [Concomitant]
     Indication: PROPHYLAXIS AGAINST GRAFT VERSUS HOST DISEASE
     Dates: start: 20110910, end: 20111024
  15. METHOTREXATE [Concomitant]
     Indication: PROPHYLAXIS AGAINST GRAFT VERSUS HOST DISEASE
     Dates: start: 20110914, end: 20110919

REACTIONS (8)
  - Capillary leak syndrome [Unknown]
  - Coagulopathy [Unknown]
  - Hepatic function abnormal [Unknown]
  - Cytokine release syndrome [Unknown]
  - Blood pressure decreased [Unknown]
  - Mucous membrane disorder [Unknown]
  - Amylase increased [Unknown]
  - Neutrophil count decreased [Unknown]
